FAERS Safety Report 6139673-4 (Version None)
Quarter: 2009Q2

REPORT INFORMATION
  Report Type: 
  Country: None (occurrence: None)
  Receive Date: 20090401
  Receipt Date: 20090212
  Transmission Date: 20091009
  Serious: No
  Sender: FDA-Public Use
  Company Number: US-TYCO HEALTHCARE/MALLINCKRODT-T200900368

PATIENT
  Sex: Female

DRUGS (8)
  1. TECHNETIUM TC 99M SESTAMIBI [Suspect]
     Indication: SCAN PARATHYROID
     Dosage: UNK
     Dates: start: 20090212, end: 20090212
  2. ULTRA-TECHNEKOW [Suspect]
     Indication: SCAN PARATHYROID
     Dosage: 26.9 MCI, SINGLE
     Dates: start: 20090212, end: 20090212
  3. VITAMIN E                          /00110501/ [Concomitant]
  4. VITAMIN C                          /00008001/ [Concomitant]
  5. MULTIVITAMIN                       /00831701/ [Concomitant]
  6. OYSTER D [Concomitant]
  7. LOVASTATIN [Concomitant]
  8. PREMARIN [Concomitant]

REACTIONS (2)
  - PRURITUS [None]
  - RASH ERYTHEMATOUS [None]
